FAERS Safety Report 5570476-5 (Version None)
Quarter: 2007Q4

REPORT INFORMATION
  Report Type: 
  Country: None (occurrence: None)
  Receive Date: 20071221
  Receipt Date: 20071011
  Transmission Date: 20080405
  Serious: No
  Sender: FDA-Public Use
  Company Number: US-BRISTOL-MYERS SQUIBB COMPANY-13938006

PATIENT
  Age: 64 Year
  Sex: Male
  Weight: 111 kg

DRUGS (9)
  1. ORENCIA [Suspect]
     Indication: RHEUMATOID ARTHRITIS
     Dosage: 4 VIALS, 1000 MG.
     Route: 042
     Dates: start: 20070901
  2. HUMALOG [Concomitant]
  3. AMARYL [Concomitant]
  4. PROTONIX [Concomitant]
  5. LISINOPRIL [Concomitant]
  6. AGGRENOX [Concomitant]
  7. DYAZIDE [Concomitant]
  8. LEXAPRO [Concomitant]
  9. PREDNISONE [Concomitant]

REACTIONS (1)
  - BLOOD GLUCOSE DECREASED [None]
